FAERS Safety Report 8358012-1 (Version None)
Quarter: 2012Q2

REPORT INFORMATION
  Report Type: 
  Country: None (occurrence: None)
  Receive Date: 20120514
  Receipt Date: 20120509
  Transmission Date: 20120825
  Serious: Yes (Death, Hospitalization, Other)
  Sender: FDA-Public Use
  Company Number: JP-CELGENEUS-087-50794-12051387

PATIENT
  Sex: Female
  Weight: 43 kg

DRUGS (12)
  1. MAGMITT [Concomitant]
     Route: 065
     Dates: end: 20110831
  2. AMLODIPINE BESILATE [Concomitant]
     Route: 065
     Dates: end: 20110831
  3. MAXIPIME [Concomitant]
     Route: 065
     Dates: start: 20110725, end: 20110802
  4. DEPAS [Concomitant]
     Route: 065
     Dates: end: 20110831
  5. ZOSYN [Concomitant]
     Route: 065
     Dates: start: 20110822, end: 20110829
  6. DORIPENEM MONOHYDRATE [Concomitant]
     Route: 065
     Dates: start: 20110830, end: 20110902
  7. FAMOTIDINE [Concomitant]
     Route: 065
     Dates: end: 20110831
  8. FLUCONAZOLE [Concomitant]
     Route: 065
     Dates: end: 20110831
  9. GRANISETRON HCL [Concomitant]
     Route: 065
     Dates: start: 20110711, end: 20110717
  10. FUNGUARD [Concomitant]
     Route: 065
     Dates: start: 20110822, end: 20110825
  11. VIDAZA [Suspect]
     Indication: MYELODYSPLASTIC SYNDROME
     Dosage: 75 MILLIGRAM/SQ. METER
     Route: 041
     Dates: start: 20110711, end: 20110717
  12. MEROPENEM [Concomitant]
     Route: 065
     Dates: start: 20110808, end: 20110821

REACTIONS (9)
  - RED BLOOD CELL COUNT DECREASED [None]
  - WHITE BLOOD CELL COUNT DECREASED [None]
  - PNEUMONIA [None]
  - HYPERNATRAEMIA [None]
  - PLATELET COUNT DECREASED [None]
  - RENAL FAILURE [None]
  - FEBRILE NEUTROPENIA [None]
  - HYPERCHLORAEMIA [None]
  - HYPOKALAEMIA [None]
